FAERS Safety Report 6891965-7 (Version None)
Quarter: 2010Q3

REPORT INFORMATION
  Report Type: 
  Country: None (occurrence: None)
  Receive Date: 20100731
  Receipt Date: 20071211
  Transmission Date: 20110219
  Serious: No
  Sender: FDA-Public Use
  Company Number: US-PFIZER INC-2007091645

PATIENT
  Sex: Male
  Weight: 93.2 kg

DRUGS (7)
  1. CAVERJECT [Suspect]
     Indication: ERECTILE DYSFUNCTION
  2. XANAX [Concomitant]
  3. NORVASC [Concomitant]
  4. ATENOLOL [Concomitant]
  5. ACETYLSALICYLIC ACID SRT [Concomitant]
  6. TERAZOSIN HCL [Concomitant]
  7. PLAVIX [Concomitant]

REACTIONS (3)
  - DRUG INEFFECTIVE [None]
  - ERECTILE DYSFUNCTION [None]
  - INCORRECT DOSE ADMINISTERED [None]
